FAERS Safety Report 23567252 (Version 1)
Quarter: 2024Q1

REPORT INFORMATION
  Report Type: Spontaneous
  Country: IT (occurrence: IT)
  Receive Date: 20240226
  Receipt Date: 20240226
  Transmission Date: 20240410
  Serious: Yes (Life-Threatening, Hospitalization)
  Sender: FDA-Public Use
  Company Number: None

PATIENT
  Age: 59 Year
  Sex: Male

DRUGS (2)
  1. HALOPERIDOL [Suspect]
     Active Substance: HALOPERIDOL
     Indication: Product used for unknown indication
     Dosage: 10 GTT PER DAY
     Route: 048
  2. CLOZAPINE [Suspect]
     Active Substance: CLOZAPINE
     Indication: Product used for unknown indication
     Dosage: 100 MG X 3 TIMES A DAY
     Route: 048

REACTIONS (5)
  - Neuroleptic malignant syndrome [Unknown]
  - Coma [Unknown]
  - Hyperthermia [Unknown]
  - Tachypnoea [Unknown]
  - Clonus [Unknown]

NARRATIVE: CASE EVENT DATE: 20230720
